FAERS Safety Report 13413335 (Version 2)
Quarter: 2017Q4

REPORT INFORMATION
  Report Type: Spontaneous
  Country: US (occurrence: US)
  Receive Date: 20170406
  Receipt Date: 20171123
  Transmission Date: 20180320
  Serious: No
  Sender: FDA-Public Use
  Company Number: US-JNJFOC-20170316938

PATIENT
  Sex: Male

DRUGS (3)
  1. RISPERDAL [Suspect]
     Active Substance: RISPERIDONE
     Indication: SCHIZOAFFECTIVE DISORDER BIPOLAR TYPE
     Dosage: UNKNOWN DOSE AND 4 MG
     Route: 048
     Dates: start: 20050211, end: 20141006
  2. RISPERDAL [Suspect]
     Active Substance: RISPERIDONE
     Indication: SCHIZOAFFECTIVE DISORDER BIPOLAR TYPE
     Dosage: IN VARYING DOSES OF 0.5 MG, 1 MG AND 3 MG.
     Route: 048
     Dates: start: 19990203, end: 20050117
  3. RISPERIDONE. [Suspect]
     Active Substance: RISPERIDONE
     Indication: SCHIZOAFFECTIVE DISORDER BIPOLAR TYPE
     Route: 048
     Dates: start: 20080810, end: 20140617

REACTIONS (2)
  - Gynaecomastia [Unknown]
  - Emotional disorder [Unknown]
